FAERS Safety Report 9906376 (Version 1)
Quarter: 2014Q1

REPORT INFORMATION
  Report Type: Spontaneous
  Country: US (occurrence: US)
  Receive Date: 20140218
  Receipt Date: 20140218
  Transmission Date: 20141002
  Serious: Yes (Hospitalization, Other)
  Sender: FDA-Public Use
  Company Number: US-TAKEDA-2014TUS001120

PATIENT
  Sex: 0

DRUGS (2)
  1. COLCRYS [Suspect]
     Dosage: 0.6 MG, UNK
     Route: 048
  2. XARELTO [Concomitant]
     Dosage: UNK
     Route: 048

REACTIONS (1)
  - Cerebrovascular accident [Unknown]
